FAERS Safety Report 9162742 (Version 1)
Quarter: 2013Q1

REPORT INFORMATION
  Report Type: Spontaneous
  Country: US (occurrence: US)
  Receive Date: 20130314
  Receipt Date: 20130314
  Transmission Date: 20140127
  Serious: No
  Sender: FDA-Public Use
  Company Number: US-009507513-1303USA006795

PATIENT
  Age: 58 Year
  Sex: Female
  Weight: 81.63 kg

DRUGS (2)
  1. CLARITIN-D 24 HOUR [Suspect]
     Indication: NASAL CONGESTION
     Dosage: 10 MG, QD
     Route: 048
  2. CLARITIN-D 24 HOUR [Suspect]
     Indication: SINUS DISORDER

REACTIONS (1)
  - Drug ineffective [Unknown]
